FAERS Safety Report 13853975 (Version 3)
Quarter: 2017Q4

REPORT INFORMATION
  Report Type: Spontaneous
  Country: FR (occurrence: FR)
  Receive Date: 20170809
  Receipt Date: 20171018
  Transmission Date: 20180320
  Serious: Yes (Other)
  Sender: FDA-Public Use
  Company Number: FR-MERCK KGAA-2024413

PATIENT
  Age: 74 Year
  Sex: Female

DRUGS (4)
  1. UNSPECIFIED ANTI HYPERTENSIVE DRUG [Concomitant]
  2. NOVOTHYROX [Suspect]
     Active Substance: LEVOTHYROXINE SODIUM
     Indication: PRODUCT USED FOR UNKNOWN INDICATION
     Dates: end: 201706
  3. LEVOTHYROX 25 NF [Suspect]
     Active Substance: LEVOTHYROXINE SODIUM
     Dates: start: 201707
  4. LEVOTHYROX 100 NF [Suspect]
     Active Substance: LEVOTHYROXINE SODIUM
     Dates: start: 2017

REACTIONS (10)
  - Weight decreased [Unknown]
  - Headache [Unknown]
  - Dyspepsia [Unknown]
  - Hypokinesia [Unknown]
  - Vomiting [Unknown]
  - Hyperthyroidism [Unknown]
  - Malaise [Unknown]
  - Diarrhoea [Recovering/Resolving]
  - Blood pressure abnormal [Recovering/Resolving]
  - Balance disorder [Unknown]

NARRATIVE: CASE EVENT DATE: 2017
